FAERS Safety Report 21437904 (Version 1)
Quarter: 2022Q4

REPORT INFORMATION
  Report Type: Spontaneous
  Country: TW (occurrence: TW)
  Receive Date: 20221011
  Receipt Date: 20221011
  Transmission Date: 20230113
  Serious: Yes (Other)
  Sender: FDA-Public Use
  Company Number: TW-SUN PHARMACEUTICAL INDUSTRIES LTD-2020R1-246857

PATIENT
  Age: 27 Year
  Sex: Female

DRUGS (1)
  1. CARISOPRODOL [Suspect]
     Active Substance: CARISOPRODOL
     Indication: Product used for unknown indication
     Dosage: 17.5 GRAM
     Route: 048

REACTIONS (10)
  - Overdose [Unknown]
  - Eye movement disorder [Recovered/Resolved]
  - Anticholinergic syndrome [Recovered/Resolved]
  - Coma [Recovered/Resolved]
  - Suicide attempt [Unknown]
  - Loss of consciousness [Recovered/Resolved]
  - Tachycardia [Recovered/Resolved]
  - Pyrexia [Recovered/Resolved]
  - Mydriasis [Recovered/Resolved]
  - Seizure [Recovered/Resolved]
